FAERS Safety Report 6576078-6 (Version None)
Quarter: 2010Q1

REPORT INFORMATION
  Report Type: 
  Country: None (occurrence: None)
  Receive Date: 20100209
  Receipt Date: 20100202
  Transmission Date: 20100710
  Serious: Yes (Hospitalization)
  Sender: FDA-Public Use
  Company Number: PHHO2010BE02103

PATIENT
  Sex: Male

DRUGS (3)
  1. CERTICAN [Suspect]
     Indication: RENAL TRANSPLANT
     Route: 048
  2. NEORAL [Suspect]
     Indication: RENAL TRANSPLANT
     Dosage: 300 MG / DAY
     Route: 048
     Dates: start: 20061221
  3. NEORAL [Suspect]
     Dosage: 150 MG / DAY
     Route: 048
     Dates: end: 20090824

REACTIONS (4)
  - DYSPNOEA [None]
  - GENERALISED OEDEMA [None]
  - LUNG DISORDER [None]
  - SUPERIOR VENA CAVAL OCCLUSION [None]
